FAERS Safety Report 12931708 (Version 1)
Quarter: 2016Q4

REPORT INFORMATION
  Report Type: Report from Study
  Country: US (occurrence: US)
  Receive Date: 20161110
  Receipt Date: 20161110
  Transmission Date: 20170207
  Serious: No
  Sender: FDA-Public Use
  Company Number: PHEH2016US029501

PATIENT
  Sex: Female

DRUGS (1)
  1. AFINITOR [Suspect]
     Active Substance: EVEROLIMUS
     Indication: ORAL MUCOSAL ERUPTION
     Dosage: 5 MG, QD (ONCE DAILY)
     Route: 048
     Dates: start: 20161002

REACTIONS (2)
  - Oral pain [Recovering/Resolving]
  - Product use issue [Unknown]
